FAERS Safety Report 7073975-2 (Version None)
Quarter: 2010Q4

REPORT INFORMATION
  Report Type: 
  Country: None (occurrence: None)
  Receive Date: 20101029
  Receipt Date: 20101022
  Transmission Date: 20110411
  Serious: Yes (Hospitalization, Other)
  Sender: FDA-Public Use
  Company Number: DE-ELI_LILLY_AND_COMPANY-DE201007005259

PATIENT
  Sex: Male
  Weight: 67.2 kg

DRUGS (20)
  1. NECITUMUMAB (11F8) (LY3012211) [Suspect]
     Indication: NON-SMALL CELL LUNG CANCER
     Dosage: 800 MG, OTHER
     Route: 042
     Dates: start: 20100528
  2. NECITUMUMAB (11F8) (LY3012211) [Suspect]
     Dosage: 400 MG, OTHER
     Route: 042
  3. PEMETREXED [Suspect]
     Indication: NON-SMALL CELL LUNG CANCER
     Dosage: 800 MG, OTHER
     Route: 042
     Dates: start: 20100528
  4. PEMETREXED [Suspect]
     Dosage: 712.5 MG, OTHER
     Route: 042
  5. CISPLATIN [Suspect]
     Indication: NON-SMALL CELL LUNG CANCER
     Dosage: 144 MG, OTHER
     Route: 042
     Dates: start: 20100528
  6. CISPLATIN [Suspect]
     Dosage: 106.4 MG, OTHER
     Route: 042
  7. BUDESONIDE [Concomitant]
     Indication: DYSPNOEA
     Dates: start: 20100330
  8. INDACATEROL [Concomitant]
     Indication: DYSPNOEA
     Dosage: UNK, UNK
     Dates: start: 20100330
  9. METOCLOPRAMIDE [Concomitant]
     Indication: NAUSEA
     Dosage: 80 MG, UNK
     Dates: start: 20100616
  10. TPN [Concomitant]
     Indication: DEHYDRATION
     Dates: start: 20100715, end: 20100719
  11. POTASSIUM CHLORIDE [Concomitant]
     Indication: HYPOKALAEMIA
     Dates: start: 20100715, end: 20100715
  12. POTASSIUM CHLORIDE [Concomitant]
     Dates: start: 20100717, end: 20100717
  13. PANTOPRAZOLE SODIUM [Concomitant]
     Indication: VOMITING
     Dosage: UNK, UNK
     Dates: start: 20100716
  14. PANTOPRAZOLE SODIUM [Concomitant]
     Route: 042
     Dates: start: 20100715, end: 20100715
  15. APREPITANT [Concomitant]
     Indication: NAUSEA
     Dates: start: 20100618, end: 20100619
  16. APREPITANT [Concomitant]
     Dates: start: 20100529, end: 20100530
  17. APREPITANT [Concomitant]
     Dosage: 80 MG, UNK
     Dates: start: 20100730, end: 20100731
  18. DEXAMETHASONE [Concomitant]
     Indication: NAUSEA
     Dates: start: 20100618, end: 20100620
  19. DEXAMETHASONE [Concomitant]
     Dates: start: 20100529, end: 20100531
  20. DEXAMETHASONE [Concomitant]
     Dosage: 8 MG, UNK
     Dates: start: 20100730, end: 20100801

REACTIONS (4)
  - INTESTINAL ISCHAEMIA [None]
  - LEUKOPENIA [None]
  - STAPHYLOCOCCAL INFECTION [None]
  - VOMITING [None]
